FAERS Safety Report 9068648 (Version 7)
Quarter: 2017Q1

REPORT INFORMATION
  Report Type: Spontaneous
  Country: FI (occurrence: FI)
  Receive Date: 20130128
  Receipt Date: 20170316
  Transmission Date: 20170429
  Serious: Yes (Death, Hospitalization, Other)
  Sender: FDA-Public Use
  Company Number: FI-ROCHE-1181323

PATIENT
  Age: 74 Year
  Sex: Female

DRUGS (10)
  1. MABTHERA [Suspect]
     Active Substance: RITUXIMAB
     Indication: B-CELL LYMPHOMA
     Route: 042
     Dates: start: 201101, end: 201301
  2. DIFORMIN RETARD [Concomitant]
     Active Substance: METFORMIN HYDROCHLORIDE
     Indication: DIABETES MELLITUS
     Route: 048
  3. PLENDIL [Concomitant]
     Active Substance: FELODIPINE
     Route: 048
  4. TRIMOPAN (FINLAND) [Concomitant]
     Route: 048
  5. LIPCUT [Concomitant]
     Active Substance: SIMVASTATIN
     Route: 048
  6. MIRTAZAPINE. [Concomitant]
     Active Substance: MIRTAZAPINE
     Route: 065
  7. ORMOX [Concomitant]
     Route: 048
  8. LEVACT (FINLAND) [Concomitant]
     Active Substance: BENDAMUSTINE HYDROCHLORIDE
     Indication: B-CELL LYMPHOMA
     Dosage: POWDER FOR CONCENTRATE FOR SOLUTION FOR INFUSION
     Route: 042
     Dates: start: 201101, end: 201307
  9. EMCONCOR [Concomitant]
     Active Substance: BISOPROLOL FUMARATE
     Route: 048
  10. GLUCOSAMINE SULFATE/MENTHOL/METHYL SULFONYL METHANE [Concomitant]
     Route: 048

REACTIONS (4)
  - Coordination abnormal [Unknown]
  - Visual field defect [Unknown]
  - Progressive multifocal leukoencephalopathy [Fatal]
  - Headache [Unknown]

NARRATIVE: CASE EVENT DATE: 20130107
